FAERS Safety Report 13852715 (Version 1)
Quarter: 2017Q3

REPORT INFORMATION
  Report Type: Spontaneous
  Country: GB (occurrence: GB)
  Receive Date: 20170809
  Receipt Date: 20170809
  Transmission Date: 20171127
  Serious: Yes (Other)
  Sender: FDA-Public Use
  Company Number: GB-ABBVIE-17P-167-2064850-00

PATIENT
  Age: 48 Year
  Sex: Female
  Weight: 79.82 kg

DRUGS (1)
  1. CLARITHROMYCIN. [Suspect]
     Active Substance: CLARITHROMYCIN
     Indication: ALLERGY TO ARTHROPOD STING
     Route: 048
     Dates: start: 20170712, end: 20170715

REACTIONS (7)
  - Nightmare [Unknown]
  - Nervousness [Unknown]
  - Paranoia [Recovered/Resolved]
  - Hallucination [Recovered/Resolved with Sequelae]
  - Sleep terror [Recovered/Resolved]
  - Anxiety [Recovered/Resolved with Sequelae]
  - Dysgeusia [Recovered/Resolved]

NARRATIVE: CASE EVENT DATE: 20170713
